FAERS Safety Report 5334827-9 (Version None)
Quarter: 2007Q2

REPORT INFORMATION
  Report Type: 
  Country: None (occurrence: None)
  Receive Date: 20070525
  Receipt Date: 20070514
  Transmission Date: 20071010
  Serious: Yes (Hospitalization)
  Sender: FDA-Public Use
  Company Number: DE-ROCHE-497756

PATIENT
  Age: 63 Year
  Sex: Male
  Weight: 80 kg

DRUGS (3)
  1. KEVATRIL [Suspect]
     Indication: ANTIEMETIC SUPPORTIVE CARE
     Route: 042
  2. BEVACIZUMAB [Suspect]
     Indication: COLORECTAL CANCER
     Route: 065
  3. CAMPTOSAR [Suspect]
     Indication: UNEVALUABLE EVENT
     Route: 042

REACTIONS (1)
  - PACEMAKER COMPLICATION [None]
